FAERS Safety Report 8495338-5 (Version None)
Quarter: 2012Q3

REPORT INFORMATION
  Report Type: 
  Country: None (occurrence: None)
  Receive Date: 20120709
  Receipt Date: 20120628
  Transmission Date: 20120928
  Serious: Yes (Hospitalization, Other)
  Sender: FDA-Public Use
  Company Number: US-BAYER-2012-065922

PATIENT
  Age: 29 Year
  Sex: Female

DRUGS (5)
  1. BENADRYL [Concomitant]
  2. DROSPIRENONE AND ETHINYL ESTRADIOL [Suspect]
  3. TRIAMCINOLONE [Concomitant]
     Dosage: UNK
  4. YAZ [Suspect]
  5. VICODIN [Concomitant]
     Indication: DISCOMFORT

REACTIONS (2)
  - PULMONARY EMBOLISM [None]
  - DEEP VEIN THROMBOSIS [None]
